FAERS Safety Report 19498148 (Version 3)
Quarter: 2021Q3

REPORT INFORMATION
  Report Type: Report from Study
  Country: GB (occurrence: GB)
  Receive Date: 20210706
  Receipt Date: 20210924
  Transmission Date: 20211014
  Serious: Yes (Other)
  Sender: FDA-Public Use
  Company Number: NVSC2021GB138557

PATIENT
  Sex: Female

DRUGS (4)
  1. METRONIDAZOL [Concomitant]
     Active Substance: METRONIDAZOLE
     Indication: PRODUCT USED FOR UNKNOWN INDICATION
     Dosage: UNK
     Route: 065
  2. NITROFURANTOIN. [Concomitant]
     Active Substance: NITROFURANTOIN
     Indication: PRODUCT USED FOR UNKNOWN INDICATION
     Dosage: UNK
     Route: 065
  3. HYRIMOZ [Suspect]
     Active Substance: ADALIMUMAB-ADAZ
     Dosage: 160 MG (LOADING DOSE) (2ND AND 3RD APR)
     Route: 065
  4. HYRIMOZ [Suspect]
     Active Substance: ADALIMUMAB-ADAZ
     Indication: COLITIS ULCERATIVE
     Dosage: 40 MG, Q2W (EOW)
     Route: 058

REACTIONS (9)
  - Back pain [Unknown]
  - Micturition urgency [Recovering/Resolving]
  - Heavy menstrual bleeding [Unknown]
  - Muscle spasms [Unknown]
  - Abdominal pain [Recovering/Resolving]
  - Nausea [Unknown]
  - Migraine [Unknown]
  - Urinary retention [Recovering/Resolving]
  - Amenorrhoea [Recovering/Resolving]

NARRATIVE: CASE EVENT DATE: 202104
